FAERS Safety Report 7897300-X (Version None)
Quarter: 2011Q4

REPORT INFORMATION
  Report Type: 
  Country: None (occurrence: None)
  Receive Date: 20111107
  Receipt Date: 20111031
  Transmission Date: 20120403
  Serious: Yes (Other)
  Sender: FDA-Public Use
  Company Number: PHHY2010CA71432

PATIENT
  Sex: Female

DRUGS (17)
  1. ACETYLCODONE [Concomitant]
     Dosage: UNK UKN, UNK
  2. PERINDOPRIL ERBUMINE [Concomitant]
     Dosage: UNK UKN, UNK
  3. CIPRO [Concomitant]
     Dosage: UNK UKN, UNK
  4. ZOLEDRONOC ACID [Suspect]
     Indication: OSTEOPOROSIS
     Dosage: 5 MG/ 100 ML
     Route: 042
     Dates: start: 20080715
  5. COSOPT [Concomitant]
     Dosage: UNK UKN, UNK
  6. SYMBICORT [Concomitant]
     Dosage: UNK UKN, UNK
  7. NICODERM [Concomitant]
     Dosage: UNK UKN, UNK
  8. NICORETTE [Concomitant]
     Dosage: UNK UKN, UNK
  9. CITALOPRAM [Concomitant]
     Dosage: UNK UKN, UNK
  10. PREVACID [Concomitant]
     Dosage: 1 DF, UNK
  11. FUCIDINE CAP [Concomitant]
     Dosage: UNK UKN, UNK
  12. VITAMIN D [Concomitant]
     Dosage: UNK UKN, UNK
  13. PMS-CYCLOBENZAPRINE [Concomitant]
     Dosage: UNK UKN, UNK
  14. ATIVAN [Concomitant]
     Dosage: UNK UKN, UNK
  15. ASAPHEN [Concomitant]
     Dosage: UNK UKN, UNK
  16. RANITIDINE [Concomitant]
     Dosage: UNK UKN, UNK
  17. SPIRIVA [Concomitant]
     Dosage: UNK UKN, UNK

REACTIONS (5)
  - PAIN [None]
  - ARTHRALGIA [None]
  - BONE PAIN [None]
  - MUSCULOSKELETAL PAIN [None]
  - BONE DENSITY DECREASED [None]
